FAERS Safety Report 9375271 (Version 2)
Quarter: 2013Q3

REPORT INFORMATION
  Report Type: Spontaneous
  Country: US (occurrence: US)
  Receive Date: 20130628
  Receipt Date: 20130911
  Transmission Date: 20140515
  Serious: Yes (Hospitalization, Other)
  Sender: FDA-Public Use
  Company Number: US-PAR PHARMACEUTICAL, INC-2013SCPR006004

PATIENT
  Sex: 0

DRUGS (2)
  1. METOCLOPRAMIDE [Suspect]
     Indication: NAUSEA
     Dosage: 5 MG, TID
     Route: 048
  2. METOCLOPRAMIDE [Suspect]
     Dosage: 10 MG, TID
     Route: 048
     Dates: end: 201002

REACTIONS (2)
  - Metabolic acidosis [Unknown]
  - Tardive dyskinesia [Unknown]
